FAERS Safety Report 5437718-8 (Version None)
Quarter: 2007Q3

REPORT INFORMATION
  Report Type: 
  Country: None (occurrence: None)
  Receive Date: 20070831
  Receipt Date: 20070731
  Transmission Date: 20080115
  Serious: No
  Sender: FDA-Public Use
  Company Number: A0666950A

PATIENT
  Age: 38 Year
  Sex: Female

DRUGS (1)
  1. ALLI [Suspect]
     Dates: start: 20070712

REACTIONS (8)
  - ABDOMINAL DISTENSION [None]
  - DEFAECATION URGENCY [None]
  - DRUG INEFFECTIVE [None]
  - FAECES DISCOLOURED [None]
  - FLATULENCE [None]
  - INCREASED APPETITE [None]
  - RECTAL DISCHARGE [None]
  - STEATORRHOEA [None]
